FAERS Safety Report 9522637 (Version 1)
Quarter: 2013Q1

REPORT INFORMATION
  Report Type: Spontaneous
  Country: US (occurrence: None)
  Receive Date: 20130305
  Receipt Date: 20130305
  Transmission Date: 20140127
  Serious: Yes (Hospitalization)
  Sender: FDA-Public Use
  Company Number: 163-21880-12070724

PATIENT
  Age: 58 Year
  Sex: Male
  Weight: 101.15 kg

DRUGS (14)
  1. REVLIMID [Suspect]
     Indication: PLASMA CELL MYELOMA
     Dosage: 25 MG, 21 IN 28 D, PO
     Route: 048
     Dates: start: 201011
  2. VELCADE [Suspect]
     Indication: PLASMA CELL MYELOMA
     Dosage: 3 IN 4 WK, SC
     Route: 058
     Dates: start: 201203, end: 201206
  3. DEXAMETHASONE [Suspect]
     Indication: PLASMA CELL MYELOMA
     Dosage: 20 MG, 1 IN 1 WK, PO
     Route: 048
  4. CALCIUM + VITAMIN D (LEKOVIT CA) (CAPSULES) [Concomitant]
  5. VALTREX (VALACICLOVIR HYDROCHLORIDE) (UNKNOWN) [Concomitant]
  6. AREDIA (PAMIDRONATE DISODIUM) (UNKNOWN) [Concomitant]
  7. BABY ASPIRIN (ACETYLSALICYLIC ACID) (CHEWABLE TABLET) [Concomitant]
  8. MVI (MVI) TABLETS) [Concomitant]
  9. SINGULAIR [Concomitant]
  10. VITAMIN D3 (COLECALCIFEROL) (TABLETS) [Concomitant]
  11. OXYGEN (OXYGEN) (UNKNOWN) [Concomitant]
  12. AZITHROMYCIN (AZITHROMYCIN) (UNKNOWN) [Concomitant]
  13. CEFTRIAXONE (CEFTRIAXONE) (UNKNOWN) [Concomitant]
  14. PEPCID (FAMOTIDINE) (UNKNOWN0 [Concomitant]

REACTIONS (8)
  - Pneumonia [None]
  - Dehydration [None]
  - Thrombocytopenia [None]
  - Asthenia [None]
  - Hyperhidrosis [None]
  - Dizziness [None]
  - Decreased appetite [None]
  - Plasma cell myeloma [None]
